FAERS Safety Report 5213562-1 (Version None)
Quarter: 2007Q1

REPORT INFORMATION
  Report Type: 
  Country: None (occurrence: None)
  Receive Date: 20070119
  Receipt Date: 20070110
  Transmission Date: 20070707
  Serious: Yes (Other)
  Sender: FDA-Public Use
  Company Number: CA-ABBOTT-07P-028-0355743-00

PATIENT
  Sex: Male

DRUGS (2)
  1. DILAUDID [Suspect]
     Indication: PAIN
     Route: 058
     Dates: start: 20061205
  2. DILAUDID [Suspect]
     Route: 058
     Dates: start: 20061205

REACTIONS (1)
  - INFUSION SITE IRRITATION [None]
